FAERS Safety Report 23262832 (Version 1)
Quarter: 2023Q4

REPORT INFORMATION
  Report Type: Spontaneous
  Country: US (occurrence: None)
  Receive Date: 20231204
  Receipt Date: 20231204
  Transmission Date: 20240109
  Serious: Yes (Hospitalization)
  Sender: FDA-Public Use
  Company Number: None

PATIENT
  Age: 49 Year
  Sex: Male
  Weight: 65 kg

DRUGS (1)
  1. YESCARTA [Suspect]
     Active Substance: AXICABTAGENE CILOLEUCEL
     Indication: Diffuse large B-cell lymphoma
     Dates: start: 20230329, end: 20230329

REACTIONS (9)
  - Pyrexia [None]
  - Abdominal pain [None]
  - C-reactive protein increased [None]
  - Cytokine release syndrome [None]
  - Headache [None]
  - Tremor [None]
  - Brain fog [None]
  - Cerebral disorder [None]
  - Immune effector cell-associated neurotoxicity syndrome [None]

NARRATIVE: CASE EVENT DATE: 20230329
